FAERS Safety Report 21516701 (Version 2)
Quarter: 2022Q4

REPORT INFORMATION
  Report Type: Spontaneous
  Country: CA (occurrence: None)
  Receive Date: 20221027
  Receipt Date: 20221102
  Transmission Date: 20230112
  Serious: Yes (Hospitalization, Disabling, Other)
  Sender: FDA-Public Use
  Company Number: CA-ROCHE-3207508

PATIENT
  Sex: Female
  Weight: 3 kg

DRUGS (4)
  1. CLONAZEPAM [Suspect]
     Active Substance: CLONAZEPAM
     Indication: Product used for unknown indication
     Dosage: 0.25 MG IN 1 DAY
     Route: 064
  2. SERTRALINE [Suspect]
     Active Substance: SERTRALINE HYDROCHLORIDE
     Indication: Cerebral palsy
     Dosage: 200 MILLIGRAM IN 1 DAY
     Route: 064
  3. TRAMADOL HYDROCHLORIDE [Suspect]
     Active Substance: TRAMADOL HYDROCHLORIDE
     Indication: Cerebral palsy
     Dosage: 100 MILLIGRAM IN 6 HOUR
     Route: 064
  4. LEVOTHYROXINE SODIUM [Concomitant]
     Active Substance: LEVOTHYROXINE SODIUM

REACTIONS (3)
  - Hypotonia [Recovered/Resolved]
  - Respiratory distress [Recovered/Resolved]
  - Foetal exposure during pregnancy [Unknown]
